FAERS Safety Report 13783826 (Version 3)
Quarter: 2020Q2

REPORT INFORMATION
  Report Type: Report from Study
  Country: AU (occurrence: AU)
  Receive Date: 20170724
  Receipt Date: 20200518
  Transmission Date: 20200713
  Serious: Yes (Other)
  Sender: FDA-Public Use
  Company Number: AU-JNJFOC-20170716290

PATIENT
  Sex: Female

DRUGS (2)
  1. REMICADE [Suspect]
     Active Substance: INFLIXIMAB
     Dosage: LAST DOSE FEB-2017 OR MAR-2017
     Route: 042
     Dates: start: 2017, end: 201705
  2. REMICADE [Suspect]
     Active Substance: INFLIXIMAB
     Indication: CROHN^S DISEASE
     Route: 042

REACTIONS (3)
  - Intestinal resection [Unknown]
  - Psoriasis [Unknown]
  - Candida infection [Unknown]

NARRATIVE: CASE EVENT DATE: 2016
